FAERS Safety Report 9384978 (Version 1)
Quarter: 2013Q3

REPORT INFORMATION
  Report Type: Spontaneous
  Country: BE (occurrence: BE)
  Receive Date: 20130705
  Receipt Date: 20130705
  Transmission Date: 20140515
  Serious: Yes (Other)
  Sender: FDA-Public Use
  Company Number: BE-UCBSA-090444

PATIENT
  Age: 6 Year
  Sex: Female
  Weight: 18 kg

DRUGS (5)
  1. KEPPRA [Suspect]
     Indication: EPILEPSY
     Route: 048
  2. VALPROATE [Suspect]
     Indication: EPILEPSY
     Dosage: 600 MG -EVENING
     Route: 048
  3. TEGRETOL CR [Suspect]
     Indication: EPILEPSY
     Dosage: 100 MG - MORNING
     Route: 048
  4. TEGRETOL CR [Suspect]
     Indication: EPILEPSY
     Dosage: 200 MG - EVENING
     Route: 048
  5. PHENOBARBITAL [Concomitant]
     Indication: CONVULSION

REACTIONS (2)
  - Status epilepticus [Recovered/Resolved]
  - Underdose [Unknown]
